FAERS Safety Report 18574627 (Version 2)
Quarter: 2021Q2

REPORT INFORMATION
  Report Type: Report from Study
  Country: US (occurrence: US)
  Receive Date: 20201203
  Receipt Date: 20210416
  Transmission Date: 20210717
  Serious: No
  Sender: FDA-Public Use
  Company Number: NVSC2020US321191

PATIENT
  Sex: Female

DRUGS (1)
  1. COSENTYX [Suspect]
     Active Substance: SECUKINUMAB
     Indication: PSORIATIC ARTHROPATHY
     Dosage: 300 MG, QMO
     Route: 058
     Dates: start: 202002

REACTIONS (3)
  - Arthralgia [Unknown]
  - Pain [Unknown]
  - Joint swelling [Unknown]
